FAERS Safety Report 21278591 (Version 2)
Quarter: 2022Q4

REPORT INFORMATION
  Report Type: Report from Study
  Country: AU (occurrence: AU)
  Receive Date: 20220901
  Receipt Date: 20221003
  Transmission Date: 20230112
  Serious: Yes (Hospitalization)
  Sender: FDA-Public Use
  Company Number: AU-BRISTOL-MYERS SQUIBB COMPANY-2022-094875

PATIENT
  Age: 74 Year
  Sex: Female
  Weight: 82 kg

DRUGS (30)
  1. AZACITIDINE [Suspect]
     Active Substance: AZACITIDINE
     Indication: Acute myeloid leukaemia
     Dosage: 200 MG DAYS 1-14 OF EACH 28 DAY CYCLE, EVERY 1 DAYS; 200 MG DAYS 1-14 OF EACH 28 DAY CYCLE,? EVERY 1
     Route: 048
     Dates: start: 20220812, end: 20220815
  2. AZACITIDINE [Suspect]
     Active Substance: AZACITIDINE
     Route: 048
     Dates: start: 20220912, end: 20220913
  3. VENETOCLAX [Suspect]
     Active Substance: VENETOCLAX
     Indication: Acute myeloid leukaemia
     Route: 048
     Dates: start: 20220812, end: 20220815
  4. VENETOCLAX [Suspect]
     Active Substance: VENETOCLAX
     Route: 048
     Dates: start: 20220827, end: 20220913
  5. ACETAMINOPHEN [Concomitant]
     Active Substance: ACETAMINOPHEN
     Indication: Osteoarthritis
     Dosage: 4 IN ONE DAY
     Route: 048
     Dates: start: 2014
  6. BECLOMETHASONE DIPROPIONATE [Concomitant]
     Active Substance: BECLOMETHASONE DIPROPIONATE
     Indication: Asthma
     Dosage: 2 IN 1 D
     Route: 045
     Dates: start: 2012
  7. CANDESARTAN [Concomitant]
     Active Substance: CANDESARTAN
     Indication: Hypertension
     Route: 048
     Dates: start: 2018, end: 20220815
  8. FEXOFENADINE [Concomitant]
     Active Substance: FEXOFENADINE HYDROCHLORIDE
     Indication: Hypersensitivity
     Dosage: AT NIGHT
     Route: 048
     Dates: start: 202201
  9. FLUTICASONE [Concomitant]
     Active Substance: FLUTICASONE
     Indication: Asthma
     Route: 055
     Dates: start: 2017
  10. POLYTEARS [Concomitant]
     Indication: Dry eye
     Route: 047
     Dates: start: 20220614
  11. LACTULOSE [Concomitant]
     Active Substance: LACTULOSE
     Indication: Constipation
     Dosage: 1 AS REQUIRED
     Route: 048
     Dates: start: 2005
  12. MOVICOL [Concomitant]
     Active Substance: POLYETHYLENE GLYCOL 3350\POTASSIUM CHLORIDE\SODIUM BICARBONATE\SODIUM CHLORIDE
     Indication: Constipation
     Dosage: ONE SACHET 1 AS REQUIRED
     Route: 048
     Dates: start: 20220606
  13. POSACONAZOLE [Concomitant]
     Active Substance: POSACONAZOLE
     Indication: Antifungal prophylaxis
     Route: 048
     Dates: start: 202201
  14. OXAZEPAM [Concomitant]
     Active Substance: OXAZEPAM
     Indication: Anxiety
     Route: 048
     Dates: start: 2002
  15. PANTOPRAZOLE [Concomitant]
     Active Substance: PANTOPRAZOLE
     Indication: Gastrooesophageal reflux disease
     Route: 048
     Dates: start: 2010
  16. VITAMIN B6 [Concomitant]
     Active Substance: PYRIDOXINE HYDROCHLORIDE
     Indication: Prophylaxis
     Route: 048
     Dates: start: 2021
  17. VITAMIN C [Concomitant]
     Active Substance: ASCORBIC ACID
     Indication: Prophylaxis
     Route: 048
     Dates: start: 202201
  18. DESVENLAFAXINE [Concomitant]
     Active Substance: DESVENLAFAXINE
     Indication: Depression
     Route: 048
     Dates: start: 2014, end: 20220813
  19. DESVENLAFAXINE [Concomitant]
     Active Substance: DESVENLAFAXINE
     Route: 048
     Dates: start: 20220814
  20. ALLOPURINOL [Concomitant]
     Active Substance: ALLOPURINOL
     Indication: Prophylaxis
     Route: 048
     Dates: start: 202201
  21. VALTREX [Concomitant]
     Active Substance: VALACYCLOVIR HYDROCHLORIDE
     Indication: Prophylaxis
     Route: 048
     Dates: start: 202201
  22. CLINDAMYCIN [Concomitant]
     Active Substance: CLINDAMYCIN
     Indication: Cellulitis
     Dosage: 3 IN ONE DAY
     Route: 048
     Dates: start: 20220812, end: 20220817
  23. CYCLIZINE [Concomitant]
     Active Substance: CYCLIZINE
     Indication: Nausea
     Dosage: 3 IN ONE DAY
     Route: 048
     Dates: start: 20220815
  24. QV [CETYL ALCOHOL;DIMETICONE;METHYLPARABEN;STEARYL ALCOHOL] [Concomitant]
     Indication: Cellulitis
     Dosage: ONE APPLICATOR FULL, 1 IN 1 DAY
     Route: 061
     Dates: start: 20220812
  25. NYSTATIN [Concomitant]
     Active Substance: NYSTATIN
     Indication: Prophylaxis
     Dosage: 4 IN ONE DAY
     Route: 048
     Dates: start: 20220811, end: 20220818
  26. ONDANSETRON [Concomitant]
     Active Substance: ONDANSETRON
     Indication: Nausea
     Route: 048
     Dates: start: 20220814, end: 20220814
  27. ONDANSETRON [Concomitant]
     Active Substance: ONDANSETRON
     Dosage: 1 AS REQUIRED
     Route: 048
     Dates: start: 20220813, end: 20220816
  28. HYDROCORTISONE [Concomitant]
     Active Substance: HYDROCORTISONE
     Indication: Cellulitis
     Dosage: ONE APPLICATOR FULL ONE IN ONE DAY
     Route: 061
     Dates: start: 20220813
  29. MAGNESIUM ASPARTATE [Concomitant]
     Active Substance: MAGNESIUM ASPARTATE
     Indication: Electrolyte substitution therapy
     Dosage: ONE APPLICATOR FULL ONE IN ONE DAY
     Route: 065
     Dates: start: 20220808, end: 20220820
  30. MAGNESIUM ASPARTATE [Concomitant]
     Active Substance: MAGNESIUM ASPARTATE
     Route: 065

REACTIONS (1)
  - Hyponatraemia [Recovered/Resolved]

NARRATIVE: CASE EVENT DATE: 20220815
